FAERS Safety Report 20143045 (Version 2)
Quarter: 2021Q4

REPORT INFORMATION
  Report Type: Spontaneous
  Country: US (occurrence: US)
  Receive Date: 20211202
  Receipt Date: 20211209
  Transmission Date: 20220303
  Serious: Yes (Hospitalization)
  Sender: FDA-Public Use
  Company Number: US-drreddys-LIT/USA/21/0144422

PATIENT
  Age: 78 Year
  Sex: Male

DRUGS (6)
  1. FENTANYL CITRATE [Suspect]
     Active Substance: FENTANYL CITRATE
     Indication: Penile pain
     Dosage: AS NEEDED
  2. ACETAMINOPHEN [Suspect]
     Active Substance: ACETAMINOPHEN
     Indication: Penile pain
  3. GABAPENTIN [Suspect]
     Active Substance: GABAPENTIN
     Indication: Penile pain
  4. HYDROMORPHONE [Suspect]
     Active Substance: HYDROMORPHONE
     Indication: Penile pain
  5. MORPHINE [Suspect]
     Active Substance: MORPHINE
     Indication: Penile pain
  6. TRAMADOL [Suspect]
     Active Substance: TRAMADOL
     Indication: Penile pain

REACTIONS (1)
  - Drug ineffective [Unknown]
